FAERS Safety Report 6241288-4 (Version None)
Quarter: 2009Q2

REPORT INFORMATION
  Report Type: 
  Country: None (occurrence: None)
  Receive Date: 20090619
  Receipt Date: 20090619
  Transmission Date: 20091009
  Serious: No
  Sender: FDA-Public Use
  Company Number: None

PATIENT
  Age: 57 Year
  Sex: Female
  Weight: 63.5036 kg

DRUGS (2)
  1. ZICAM GEL SWABS ZICAM [Suspect]
     Indication: NASOPHARYNGITIS
     Dosage: 1 SWAB BEGINNING OF COLD NASAL
     Route: 045
     Dates: start: 20070301, end: 20071231
  2. ZICAM GEL SWABS ZICAM [Suspect]
     Indication: NASOPHARYNGITIS
     Dosage: 1 SWAB BEGINNING OF COLD NASAL
     Route: 045
     Dates: start: 20080301, end: 20090430

REACTIONS (1)
  - ANOSMIA [None]
